FAERS Safety Report 10049384 (Version 1)
Quarter: 2014Q2

REPORT INFORMATION
  Report Type: Spontaneous
  Country: JP (occurrence: JP)
  Receive Date: 20140401
  Receipt Date: 20140401
  Transmission Date: 20141212
  Serious: Yes (Hospitalization, Other)
  Sender: FDA-Public Use
  Company Number: JP-BRISTOL-MYERS SQUIBB COMPANY-20582854

PATIENT
  Age: 70 Year
  Sex: Male
  Weight: 56 kg

DRUGS (8)
  1. HYDREA CAPS 500 MG [Suspect]
     Indication: POLYCYTHAEMIA VERA
     Route: 048
     Dates: start: 200112, end: 20131021
  2. FEBUXOSTAT [Suspect]
     Indication: HYPERURICOSURIA
     Route: 048
     Dates: start: 201212, end: 20131021
  3. URIEF [Concomitant]
     Dosage: TAB
     Route: 048
  4. HYDANTOL [Concomitant]
     Dosage: TAB
     Route: 048
  5. AMOROLFINE HCL [Concomitant]
     Dosage: FOR AREAS BETWEEN TOES AND PLANTAR
     Route: 061
  6. NIZORAL [Concomitant]
     Dosage: LOTION FOR TOE NAILS
     Route: 061
  7. BETNOVAT [Concomitant]
     Dosage: FOR TOES AND REDNESS IN THE KNEE
     Route: 061
  8. DERMOVATE [Concomitant]
     Indication: ERYTHEMA
     Dosage: FOR LOWER LIMBS AND REDNESS
     Route: 061

REACTIONS (3)
  - Hypersensitivity vasculitis [Recovering/Resolving]
  - Haematuria [Recovered/Resolved]
  - Proteinuria [Recovered/Resolved]
